FAERS Safety Report 15165314 (Version 1)
Quarter: 2018Q3

REPORT INFORMATION
  Report Type: Spontaneous
  Country: US (occurrence: US)
  Receive Date: 20180621
  Receipt Date: 20180621
  Transmission Date: 20181010
  Serious: Yes (Life-Threatening, Hospitalization, Disabling, Other)
  Sender: FDA-Public Use
  Company Number: None

PATIENT
  Age: 51 Year
  Sex: Female
  Weight: 87.75 kg

DRUGS (19)
  1. MULTIVITAMIN [Concomitant]
     Active Substance: VITAMINS
  2. VITAMIN B COMPLEX [Concomitant]
     Active Substance: CYANOCOBALAMIN\DEXPANTHENOL\NIACINAMIDE\PYRIDOXINE HYDROCHLORIDE\RIBOFLAVIN 5^-PHOSPHATE SODIUM\THIAMINE HYDROCHLORIDE\VITAMIN B COMPLEX
  3. COENZYME Q10 [Concomitant]
     Active Substance: UBIDECARENONE
  4. HCTZ [Concomitant]
     Active Substance: HYDROCHLOROTHIAZIDE
  5. CLONAZEPAM. [Concomitant]
     Active Substance: CLONAZEPAM
  6. VITAMIN D3 [Concomitant]
     Active Substance: CHOLECALCIFEROL
  7. ACYCLOVIR. [Concomitant]
     Active Substance: ACYCLOVIR
  8. GARLIC SOFT GELS [Concomitant]
  9. LOSARTAN. [Concomitant]
     Active Substance: LOSARTAN
  10. OMEPRAZOLE. [Concomitant]
     Active Substance: OMEPRAZOLE
  11. TRAMADOL. [Concomitant]
     Active Substance: TRAMADOL
  12. OMEGA 3?6?9 [Concomitant]
     Active Substance: FISH OIL
  13. DOCETAXEL 160 MG/16 ML [Suspect]
     Active Substance: DOCETAXEL
     Indication: OVARIAN CANCER
     Dosage: ?          QUANTITY:1 160;?
     Route: 042
     Dates: start: 20100729, end: 20101110
  14. ELIQUIS [Concomitant]
     Active Substance: APIXABAN
  15. KOREAN GINSING [Concomitant]
  16. FIBROMYALGIA [Concomitant]
  17. TYLENOL [Concomitant]
     Active Substance: ACETAMINOPHEN
  18. EFFEXOR [Concomitant]
     Active Substance: VENLAFAXINE HYDROCHLORIDE
  19. MAGNESIUM [Concomitant]
     Active Substance: MAGNESIUM

REACTIONS (6)
  - Pulmonary embolism [None]
  - Crying [None]
  - Cognitive disorder [None]
  - Paranoia [None]
  - Suicidal ideation [None]
  - Amnesia [None]

NARRATIVE: CASE EVENT DATE: 20171016
